FAERS Safety Report 9044497 (Version 2)
Quarter: 2013Q1

REPORT INFORMATION
  Report Type: Spontaneous
  Country: CN (occurrence: CN)
  Receive Date: 20130131
  Receipt Date: 20130201
  Transmission Date: 20140127
  Serious: Yes (Other)
  Sender: FDA-Public Use
  Company Number: CN-ABBOTT-13P-035-1042992-00

PATIENT
  Sex: Male

DRUGS (2)
  1. DEPAKINE CHRONO TABLET, EXTENDED RELEASE [Suspect]
     Indication: EPILEPSY
     Dosage: 1 DOSAGE FORM; DAILY
     Route: 048
     Dates: start: 201301
  2. DEPAKINE CHRONO TABLET, EXTENDED RELEASE [Suspect]
     Route: 048
     Dates: start: 2010, end: 201301

REACTIONS (2)
  - Product counterfeit [Unknown]
  - Epilepsy [Unknown]
